FAERS Safety Report 6029834-7 (Version None)
Quarter: 2009Q1

REPORT INFORMATION
  Report Type: 
  Country: None (occurrence: None)
  Receive Date: 20090106
  Receipt Date: 20090106
  Transmission Date: 20090719
  Serious: No
  Sender: FDA-Public Use
  Company Number: None

PATIENT
  Sex: Female
  Weight: 56.6996 kg

DRUGS (1)
  1. GABAPENTIN [Suspect]
     Indication: MUSCLE SPASMS
     Dosage: 1 AT BEDTIME
     Dates: start: 20081211

REACTIONS (2)
  - FEAR OF FALLING [None]
  - GAIT DISTURBANCE [None]
